FAERS Safety Report 9059635 (Version 2)
Quarter: 2013Q1

REPORT INFORMATION
  Report Type: Spontaneous
  Country: JP (occurrence: JP)
  Receive Date: 20130212
  Receipt Date: 20130225
  Transmission Date: 20140127
  Serious: Yes (Death, Hospitalization)
  Sender: FDA-Public Use
  Company Number: JP-009507513-1302JPN003231

PATIENT
  Age: 80 Year
  Sex: 0

DRUGS (2)
  1. JANUVIA TABLETS 100MG [Suspect]
     Dosage: DAILY DOSAGE UNKNOWN
     Route: 048
     Dates: start: 20121117, end: 20121124
  2. FINIBAX [Concomitant]
     Dosage: DAILY DOSAGE UNKNOWN
     Route: 041

REACTIONS (1)
  - Interstitial lung disease [Fatal]
